APPROVED DRUG PRODUCT: GLATOPA
Active Ingredient: GLATIRAMER ACETATE
Strength: 20MG/ML
Dosage Form/Route: INJECTABLE;SUBCUTANEOUS
Application: A090218 | Product #001 | TE Code: AP
Applicant: SANDOZ INC
Approved: Apr 16, 2015 | RLD: No | RS: No | Type: RX